FAERS Safety Report 17895626 (Version 1)
Quarter: 2020Q2

REPORT INFORMATION
  Report Type: Report from Study
  Country: US (occurrence: US)
  Receive Date: 20200615
  Receipt Date: 20200615
  Transmission Date: 20200714
  Serious: Yes (Other)
  Sender: FDA-Public Use
  Company Number: US-PFIZER INC-2020227359

PATIENT

DRUGS (3)
  1. GEMCITABINE HYDROCHLORIDE. [Suspect]
     Active Substance: GEMCITABINE HYDROCHLORIDE
     Indication: BLADDER CANCER STAGE IV
     Dosage: UNK (FOUR CYCLES)
     Dates: start: 2016
  2. DOCETAXEL. [Suspect]
     Active Substance: DOCETAXEL
     Indication: BLADDER CANCER STAGE IV
     Dosage: UNK (FOUR CYCLES)
     Dates: start: 2016
  3. CISPLATIN. [Suspect]
     Active Substance: CISPLATIN
     Indication: BLADDER CANCER STAGE IV
     Dosage: UNK (FOUR CYCLES)
     Dates: start: 2016

REACTIONS (10)
  - Constipation [Unknown]
  - Red blood cell count decreased [Unknown]
  - Hypoaesthesia [Unknown]
  - Lacrimation increased [Unknown]
  - Decreased appetite [Unknown]
  - Ageusia [Unknown]
  - Epistaxis [Unknown]
  - Alopecia [Unknown]
  - Fatigue [Unknown]
  - Onychomadesis [Unknown]
